FAERS Safety Report 13483923 (Version 1)
Quarter: 2017Q2

REPORT INFORMATION
  Report Type: Spontaneous
  Country: CN (occurrence: CN)
  Receive Date: 20170425
  Receipt Date: 20170425
  Transmission Date: 20170830
  Serious: Yes (Life-Threatening, Hospitalization, Other)
  Sender: FDA-Public Use
  Company Number: CN-ROCHE-1921523

PATIENT
  Age: 43 Year
  Sex: Female
  Weight: 53 kg

DRUGS (3)
  1. PIRARUBICIN [Concomitant]
     Active Substance: PIRARUBICIN
     Indication: BREAST CANCER
     Dosage: DAY 1 IN AC REGIMEN
     Route: 065
  2. CYCLOPHOSPHAMIDE. [Concomitant]
     Active Substance: CYCLOPHOSPHAMIDE
     Indication: BREAST CANCER
     Dosage: DAY 1 IN AC REGIMEN
     Route: 065
  3. XELODA [Suspect]
     Active Substance: CAPECITABINE
     Indication: BREAST CANCER
     Dosage: DAY 1 - DAY 14, SEQUENTIAL X REGIMEN
     Route: 048

REACTIONS (8)
  - Hypotension [Recovered/Resolved]
  - Dyspnoea [Recovered/Resolved]
  - Indifference [Recovered/Resolved]
  - Palmar-plantar erythrodysaesthesia syndrome [Recovered/Resolved]
  - Pyrexia [Recovered/Resolved]
  - Gastrointestinal toxicity [Recovered/Resolved]
  - Tachycardia [Recovered/Resolved]
  - Bone marrow failure [Recovered/Resolved]
